FAERS Safety Report 15164677 (Version 1)
Quarter: 2018Q3

REPORT INFORMATION
  Report Type: Spontaneous
  Country: US (occurrence: US)
  Receive Date: 20180621
  Receipt Date: 20180621
  Transmission Date: 20181010
  Serious: Yes (Hospitalization, Disabling, Other)
  Sender: FDA-Public Use
  Company Number: None

PATIENT
  Age: 79 Year
  Sex: Female
  Weight: 47.25 kg

DRUGS (10)
  1. COZAAR [Concomitant]
     Active Substance: LOSARTAN POTASSIUM
  2. MAGNESIUM [Concomitant]
     Active Substance: MAGNESIUM
  3. ASPIRIN. [Concomitant]
     Active Substance: ASPIRIN
  4. MULTI VITAMIN [Concomitant]
     Active Substance: VITAMINS
  5. LIPITOR [Concomitant]
     Active Substance: ATORVASTATIN CALCIUM
  6. TYLENOL ARTHRITIS PAIN [Concomitant]
     Active Substance: ACETAMINOPHEN
  7. PROLIA [Suspect]
     Active Substance: DENOSUMAB
     Indication: OSTEOPOROSIS
     Route: 058
     Dates: start: 20170926
  8. OSCAL [Concomitant]
     Active Substance: CALCIUM CARBONATE
  9. ZINC. [Concomitant]
     Active Substance: ZINC
  10. NORVASC [Concomitant]
     Active Substance: AMLODIPINE BESYLATE

REACTIONS (2)
  - Hyponatraemia [None]
  - Blood pressure abnormal [None]

NARRATIVE: CASE EVENT DATE: 20180620
